FAERS Safety Report 4941201-3 (Version None)
Quarter: 2006Q1

REPORT INFORMATION
  Report Type: 
  Country: None (occurrence: None)
  Receive Date: 20060309
  Receipt Date: 20060309
  Transmission Date: 20060701
  Serious: Yes (Death)
  Sender: FDA-Public Use
  Company Number: None

PATIENT
  Sex: Female
  Weight: 156.0374 kg

DRUGS (2)
  1. ALBUMIN 5% ZLB BEHRING [Suspect]
     Indication: MYASTHENIA GRAVIS
     Dosage: 4 LITERS EVERY OTHER DA INTRAVENOUS
     Route: 042
     Dates: start: 20050804, end: 20050808
  2. MESTINON [Concomitant]

REACTIONS (1)
  - SHOULDER PAIN [None]
